FAERS Safety Report 9234687 (Version 2)
Quarter: 2013Q2

REPORT INFORMATION
  Report Type: Spontaneous
  Country: US (occurrence: US)
  Receive Date: 20130416
  Receipt Date: 20130516
  Transmission Date: 20140414
  Serious: Yes (Other)
  Sender: FDA-Public Use
  Company Number: US-BAYER-2013-047452

PATIENT
  Age: 26 Year
  Sex: Female
  Weight: 52.61 kg

DRUGS (1)
  1. MIRENA [Suspect]
     Indication: CONTRACEPTION
     Dosage: 20 MCG/24HR, CONT
     Route: 015
     Dates: start: 20130318, end: 20130330

REACTIONS (3)
  - Uterine infection [Recovered/Resolved]
  - Enterococcal infection [Recovered/Resolved]
  - Lymphadenopathy [Recovered/Resolved]
